FAERS Safety Report 12623259 (Version 2)
Quarter: 2016Q4

REPORT INFORMATION
  Report Type: Spontaneous
  Country: US (occurrence: US)
  Receive Date: 20160804
  Receipt Date: 20161201
  Transmission Date: 20170207
  Serious: Yes (Other)
  Sender: FDA-Public Use
  Company Number: US-BAYER-2016-146360

PATIENT
  Age: 48 Year
  Sex: Male
  Weight: 111.11 kg

DRUGS (26)
  1. CITALOPRAM [Concomitant]
     Active Substance: CITALOPRAM HYDROBROMIDE
     Indication: SLEEP DISORDER
  2. LYRICA [Concomitant]
     Active Substance: PREGABALIN
     Indication: NEUROPATHY PERIPHERAL
     Dosage: 75 MG, BID
  3. CLONAZEPAM. [Concomitant]
     Active Substance: CLONAZEPAM
     Indication: SLEEP DISORDER
     Dosage: 0.5 MG/ 1 TAB AT BEDTIME
  4. AMITRIPTYLIN [Concomitant]
     Active Substance: AMITRIPTYLINE
     Indication: DEPRESSION
  5. NAPROXEN. [Concomitant]
     Active Substance: NAPROXEN
     Dosage: 200 MG, TID
  6. FLUOROQUINOLONES [Suspect]
     Active Substance: UNSPECIFIED INGREDIENT
  7. TRAMADOL. [Concomitant]
     Active Substance: TRAMADOL
     Indication: NEUROPATHY PERIPHERAL
     Dosage: 50 MG, BID
     Route: 048
  8. FIORICET [Concomitant]
     Active Substance: ACETAMINOPHEN\BUTALBITAL\CAFFEINE
     Indication: PAIN
     Dosage: 1 DF, PRN
  9. DOXYCYCLINE. [Concomitant]
     Active Substance: DOXYCYCLINE
     Indication: ACNE
     Dosage: 100 MG- 1 TAB AT BEDTIME
  10. LIPITOR [Concomitant]
     Active Substance: ATORVASTATIN CALCIUM
     Indication: BLOOD CHOLESTEROL INCREASED
     Dosage: 20 MG-1 TAB AT BEDTIME
  11. RETIN-A [Concomitant]
     Active Substance: TRETINOIN
     Indication: SKIN DISORDER
     Dosage: 0.5 %, PRN
  12. LEVAQUIN [Suspect]
     Active Substance: LEVOFLOXACIN
     Indication: URINARY TRACT INFECTION
     Dosage: 500 MG, UNK
     Dates: start: 20011005
  13. CITALOPRAM [Concomitant]
     Active Substance: CITALOPRAM HYDROBROMIDE
     Indication: DEPRESSION
     Dosage: 10 MG, QD
  14. ASPIRIN. [Concomitant]
     Active Substance: ASPIRIN
     Indication: CARDIOVASCULAR EVENT PROPHYLAXIS
     Dosage: 81 MG, AT BEDTIME
  15. AMITRIPTYLIN [Concomitant]
     Active Substance: AMITRIPTYLINE
     Indication: MIGRAINE
     Dosage: 25 MG/ 1 TAB AT BEDTIME
  16. AMITRIPTYLIN [Concomitant]
     Active Substance: AMITRIPTYLINE
     Indication: ANXIETY
  17. TRAMADOL. [Concomitant]
     Active Substance: TRAMADOL
     Indication: MIGRAINE
  18. FIORICET [Concomitant]
     Active Substance: ACETAMINOPHEN\BUTALBITAL\CAFFEINE
     Indication: NEUROPATHY PERIPHERAL
  19. DOCUSATE [Concomitant]
     Active Substance: DOCUSATE
     Indication: CONSTIPATION
     Dosage: 100 MG, BID
  20. METFORMIN [Concomitant]
     Active Substance: METFORMIN HYDROCHLORIDE
     Indication: DIABETES MELLITUS
     Dosage: 500 MG/ 1 TAB AT BEDTIME
  21. NAFTIN [Concomitant]
     Active Substance: NAFTIFINE HYDROCHLORIDE
     Indication: ONYCHOMYCOSIS
     Dosage: APPLY UNDER TOE NAILS X 2)
  22. CITALOPRAM [Concomitant]
     Active Substance: CITALOPRAM HYDROBROMIDE
     Indication: ANXIETY
  23. FIORICET [Concomitant]
     Active Substance: ACETAMINOPHEN\BUTALBITAL\CAFFEINE
     Indication: MIGRAINE
  24. ATENOLOL. [Concomitant]
     Active Substance: ATENOLOL
     Indication: MIGRAINE
     Dosage: 25 MG/ 1 TAB AT BEDTIME
  25. ROPINIROLE. [Concomitant]
     Active Substance: ROPINIROLE
     Indication: RESTLESS LEGS SYNDROME
     Dosage: 0.25 MG/ 1 TAB AT BEDTIME
  26. CIPRO [Suspect]
     Active Substance: CIPROFLOXACIN HYDROCHLORIDE
     Indication: PHIMOSIS
     Dosage: 500 MG, UNK
     Dates: start: 20020823

REACTIONS (18)
  - Asthenia [None]
  - Pain [None]
  - Temperature intolerance [None]
  - Paraesthesia [None]
  - Visual impairment [None]
  - Anxiety [None]
  - Neuropathy peripheral [None]
  - Constipation [None]
  - Balance disorder [None]
  - Headache [None]
  - Injury [None]
  - Coordination abnormal [None]
  - Dizziness [None]
  - Activities of daily living impaired [None]
  - Paralysis [None]
  - Burning sensation [None]
  - Hypoaesthesia [None]
  - Tenderness [None]
